FAERS Safety Report 7410469-6 (Version None)
Quarter: 2011Q2

REPORT INFORMATION
  Report Type: 
  Country: None (occurrence: None)
  Receive Date: 20110413
  Receipt Date: 20110405
  Transmission Date: 20111010
  Serious: Yes (Hospitalization)
  Sender: FDA-Public Use
  Company Number: 2009BI020544

PATIENT
  Age: 40 Year
  Sex: Female

DRUGS (1)
  1. TYSABRI [Suspect]
     Indication: MULTIPLE SCLEROSIS
     Route: 042
     Dates: start: 20090606

REACTIONS (8)
  - MULTIPLE SCLEROSIS RELAPSE [None]
  - PAIN IN EXTREMITY [None]
  - RENAL FAILURE [None]
  - BRONCHITIS [None]
  - FATIGUE [None]
  - VEIN DISORDER [None]
  - RESPIRATORY FAILURE [None]
  - PNEUMONIA [None]
